FAERS Safety Report 9685910 (Version 2)
Quarter: 2013Q4

REPORT INFORMATION
  Report Type: Spontaneous
  Country: US (occurrence: US)
  Receive Date: 20131113
  Receipt Date: 20131113
  Transmission Date: 20140711
  Serious: No
  Sender: FDA-Public Use
  Company Number: US-ALLERGAN-1312999US

PATIENT
  Age: 83 Year
  Sex: Female

DRUGS (10)
  1. COMBIGAN[R] [Suspect]
     Indication: GLAUCOMA
     Dosage: 1 GTT, SINGLE
     Route: 048
  2. LATANOPROST [Concomitant]
     Indication: GLAUCOMA
     Dosage: 2 GTT, QHS
     Route: 047
  3. REFRESH OPTIVE SENSITIVE [Concomitant]
     Indication: DRY EYE
     Dosage: 2 GTT, TID
     Route: 047
  4. ZATADOR [Concomitant]
     Indication: HYPERSENSITIVITY
     Dosage: 2 GTT, UNK
     Route: 047
  5. KETOTIFEN [Concomitant]
     Indication: HYPERSENSITIVITY
     Dosage: 2 GTT, UNK
     Route: 047
  6. BLOOD PRESSURE MEDICINE [Concomitant]
     Indication: HYPERTENSION
     Dosage: UNK
  7. CHOLESTEROL MEDICATION [Concomitant]
     Indication: BLOOD CHOLESTEROL INCREASED
     Dosage: UNK
  8. PRESERVISION [Concomitant]
     Indication: SUPPLEMENTATION THERAPY
     Dosage: UNK UNK, QD
     Route: 048
  9. LUTEIN                             /06447201/ [Concomitant]
     Indication: SUPPLEMENTATION THERAPY
     Dosage: UNK UNK, QD
     Route: 048
  10. ALL RED [Concomitant]
     Indication: SUPPLEMENTATION THERAPY
     Dosage: UNK, QD
     Route: 048

REACTIONS (3)
  - Gingival erythema [Not Recovered/Not Resolved]
  - Gingival disorder [Not Recovered/Not Resolved]
  - Accidental exposure to product [Unknown]
